FAERS Safety Report 23613111 (Version 3)
Quarter: 2025Q1

REPORT INFORMATION
  Report Type: Report from Study
  Country: US (occurrence: US)
  Receive Date: 20240308
  Receipt Date: 20250123
  Transmission Date: 20250408
  Serious: Yes (Hospitalization, Other)
  Sender: JAZZ
  Company Number: US-JAZZ PHARMACEUTICALS-2022-US-010981

PATIENT
  Sex: Male
  Weight: 101.13 kg

DRUGS (43)
  1. XYWAV [Suspect]
     Active Substance: CALCIUM OXYBATE\MAGNESIUM OXYBATE\POTASSIUM OXYBATE\SODIUM OXYBATE
     Indication: Narcolepsy
     Dosage: 3 GRAM, BID
     Route: 048
     Dates: start: 202201
  2. XYWAV [Suspect]
     Active Substance: CALCIUM OXYBATE\MAGNESIUM OXYBATE\POTASSIUM OXYBATE\SODIUM OXYBATE
     Indication: Cataplexy
     Dosage: 4.5 MILLIGRAM, BID
     Route: 048
     Dates: start: 2013
  3. XYWAV [Suspect]
     Active Substance: CALCIUM OXYBATE\MAGNESIUM OXYBATE\POTASSIUM OXYBATE\SODIUM OXYBATE
     Indication: Somnolence
     Dosage: 4.5 GRAM, BID
  4. XYWAV [Suspect]
     Active Substance: CALCIUM OXYBATE\MAGNESIUM OXYBATE\POTASSIUM OXYBATE\SODIUM OXYBATE
     Indication: Hypersomnia
  5. MONOSODIUM GLUTAMATE [Suspect]
     Active Substance: MONOSODIUM GLUTAMATE
     Indication: Product used for unknown indication
  6. PROCARDIA [Concomitant]
     Active Substance: NIFEDIPINE
     Dates: start: 20211122
  7. XANAX [Concomitant]
     Active Substance: ALPRAZOLAM
     Dates: start: 20211214
  8. ATORVASTATIN [Concomitant]
     Active Substance: ATORVASTATIN
     Dates: start: 20211015
  9. LISINOPRIL [Concomitant]
     Active Substance: LISINOPRIL
     Dates: start: 20211122
  10. NITROGLYCERIN [Concomitant]
     Active Substance: NITROGLYCERIN
     Dates: start: 20211110
  11. PANTOPRAZOLE SODIUM [Concomitant]
     Active Substance: PANTOPRAZOLE SODIUM
     Dates: start: 20211214
  12. TAMSULOSIN HYDROCHLORIDE [Concomitant]
     Active Substance: TAMSULOSIN HYDROCHLORIDE
     Dates: start: 20210105
  13. CARVEDILOL +PHARMA [Concomitant]
     Dates: start: 20220103
  14. CARVEDILOL +PHARMA [Concomitant]
     Dates: start: 20250118
  15. CLOPIDOGREL +PHARM [Concomitant]
     Dates: start: 20220110
  16. CLOPIDOGREL +PHARM [Concomitant]
     Dates: start: 20250118
  17. HYOSCYAMINE [HYOSCYAMINE SULFATE] [Concomitant]
     Dates: start: 20220325
  18. MINOXIDIL [Concomitant]
     Active Substance: MINOXIDIL
     Dates: start: 20220527
  19. SERTRALINE HYDROCHLORIDE [Concomitant]
     Active Substance: SERTRALINE HYDROCHLORIDE
     Dates: start: 20220301
  20. WAKIX [Concomitant]
     Active Substance: PITOLISANT HYDROCHLORIDE
     Dates: start: 20230915
  21. COD LIVER OIL [Concomitant]
     Active Substance: COD LIVER OIL
     Indication: Product used for unknown indication
  22. LINZESS [Concomitant]
     Active Substance: LINACLOTIDE
     Indication: Product used for unknown indication
  23. PROCARDIA [Concomitant]
     Active Substance: NIFEDIPINE
  24. PROTONIX [Concomitant]
     Active Substance: PANTOPRAZOLE SODIUM
  25. CRESTOR [Concomitant]
     Active Substance: ROSUVASTATIN CALCIUM
  26. ZOLOFT [Concomitant]
     Active Substance: SERTRALINE HYDROCHLORIDE
  27. MORNIFLUMATE [Concomitant]
     Active Substance: MORNIFLUMATE
  28. XANAX [Concomitant]
     Active Substance: ALPRAZOLAM
  29. AMOXIL [Concomitant]
     Active Substance: AMOXICILLIN
  30. ASPIRIN [Concomitant]
     Active Substance: ASPIRIN
  31. LIDODERM [Concomitant]
     Active Substance: LIDOCAINE
  32. PROVIGIL [Concomitant]
     Active Substance: MODAFINIL
  33. NASONEX [Concomitant]
     Active Substance: MOMETASONE FUROATE
  34. PITOLISANT [Concomitant]
     Active Substance: PITOLISANT
  35. FLEET ENEMA [Concomitant]
     Active Substance: SODIUM PHOSPHATE, DIBASIC\SODIUM PHOSPHATE, MONOBASIC
     Indication: Product used for unknown indication
  36. DEXEDRINE [Concomitant]
     Active Substance: DEXTROAMPHETAMINE SULFATE
     Indication: Product used for unknown indication
     Dates: start: 2004
  37. AMBIEN [Concomitant]
     Active Substance: ZOLPIDEM TARTRATE
     Indication: Product used for unknown indication
  38. HALCION [Concomitant]
     Active Substance: TRIAZOLAM
     Indication: Product used for unknown indication
  39. APPLE CIDER VINEGAR [CYANOCOBALAMIN;FOLIC ACID;MALUS SPP. VINEGAR EXTR [Concomitant]
     Indication: Product used for unknown indication
     Dates: start: 20240216
  40. KETOROLAC [Concomitant]
     Active Substance: KETOROLAC TROMETHAMINE
     Indication: Product used for unknown indication
     Dates: start: 20240708
  41. ISOSORBIDE MONONITRATE [Concomitant]
     Active Substance: ISOSORBIDE MONONITRATE
     Indication: Product used for unknown indication
     Dates: start: 20240801
  42. CELEBREX [Concomitant]
     Active Substance: CELECOXIB
     Indication: Pain
     Dosage: UNK, BID (1 CAPSULE)
     Route: 048
  43. CYMBALTA [Concomitant]
     Active Substance: DULOXETINE HYDROCHLORIDE
     Indication: Product used for unknown indication
     Dosage: UNK, BID (1 CAPUSLE)
     Route: 048

REACTIONS (8)
  - Hospitalisation [Unknown]
  - Coronary artery disease [Unknown]
  - Prostate cancer [Unknown]
  - Sinusitis [Unknown]
  - Illness [Unknown]
  - Snoring [Unknown]
  - Urinary tract disorder [Unknown]
  - Food allergy [Unknown]

NARRATIVE: CASE EVENT DATE: 20240101
